FAERS Safety Report 23907685 (Version 1)
Quarter: 2024Q2

REPORT INFORMATION
  Report Type: Spontaneous
  Country: US (occurrence: US)
  Receive Date: 20240528
  Receipt Date: 20240528
  Transmission Date: 20240716
  Serious: Yes (Other)
  Sender: FDA-Public Use
  Company Number: US-Techdow-2024Techdow000101

PATIENT
  Age: 7 Decade
  Sex: Female

DRUGS (8)
  1. HEPARIN SODIUM [Suspect]
     Active Substance: HEPARIN SODIUM
     Indication: Anticoagulant therapy
     Dosage: UNKNOWN DOSAGE,ADMINISTERED DURING THE PERI-OPERATIVE PERIOD OF CHOLECYSTECTOMY AND STOPPED ON THE D
     Route: 041
  2. HEPARIN SODIUM [Suspect]
     Active Substance: HEPARIN SODIUM
     Indication: Anticoagulant therapy
     Dosage: 6000UNIT,SINGLE DOSE,ADMINISTERED PRIOR TO THE PROCEDURE OF ELECTIVE ATRIOVENTRICULAR NODAL ABLATION
  3. HEPARIN SODIUM [Suspect]
     Active Substance: HEPARIN SODIUM
     Indication: Anticoagulant therapy
     Dosage: UNKNOWN DOSAGE
     Route: 041
  4. APIXABAN [Concomitant]
     Active Substance: APIXABAN
     Indication: Anticoagulant therapy
     Dosage: REGULAR DOSAGE,TEMPORARY DISCONTINUATION DURING THE PERI-OPERATIVE PERIOD OF CHOLECYSTECTOMY
  5. APIXABAN [Concomitant]
     Active Substance: APIXABAN
     Indication: Anticoagulant therapy
     Dosage: REGULAR DOSAGE,RESUMED WHILE RECOVERING FROM A CEREBROVASCULAR ACCIDENT AND WITHHELD DUE TO THE PULM
  6. APIXABAN [Concomitant]
     Active Substance: APIXABAN
     Indication: Anticoagulant therapy
     Dosage: UNKNOWN DOSAGE RESUMED AFTER THE NORMALIZATION OF THE PLATELET COUNT
  7. METOPROLOL [Concomitant]
     Active Substance: METOPROLOL
     Indication: Product used for unknown indication
     Dosage: UNKNOWN DOSAGE
  8. DILTIAZEM [Concomitant]
     Active Substance: DILTIAZEM
     Indication: Heart rate increased
     Dosage: UNKNOWN DOSAGE

REACTIONS (3)
  - Heparin-induced thrombocytopenia [Recovered/Resolved]
  - Cardiac arrest [Recovered/Resolved]
  - Pulmonary haemorrhage [Recovered/Resolved]
